FAERS Safety Report 12360196 (Version 6)
Quarter: 2016Q3

REPORT INFORMATION
  Report Type: Spontaneous
  Country: BR (occurrence: BR)
  Receive Date: 20160512
  Receipt Date: 20160930
  Transmission Date: 20161109
  Serious: Yes (Hospitalization, Other)
  Sender: FDA-Public Use
  Company Number: BR-PFIZER INC-2016006191

PATIENT
  Age: 27 Year
  Sex: Male
  Weight: 60 kg

DRUGS (10)
  1. TALIGLUCERASE ALFA [Suspect]
     Active Substance: TALIGLUCERASE ALFA
     Dosage: 21 AMPOULES, EVERY 15 DAYS
     Dates: start: 2016
  2. TALIGLUCERASE ALFA [Suspect]
     Active Substance: TALIGLUCERASE ALFA
     Dosage: 14 AMPOULES EVERY 15 DAYS
     Dates: start: 2015, end: 201604
  3. PHENYTOIN. [Concomitant]
     Active Substance: PHENYTOIN
     Indication: SEIZURE
     Dosage: EVERY 12 HOURS
     Dates: start: 201604
  4. CLONAZEPAM. [Concomitant]
     Active Substance: CLONAZEPAM
     Indication: SEIZURE
     Dosage: UNK
     Dates: end: 201604
  5. GARDENAL /00023201/ [Concomitant]
     Active Substance: PHENOBARBITAL
     Indication: SEIZURE
     Dosage: EVERY 12 HOURS
     Dates: start: 201604
  6. CARBAMAZEPINE. [Concomitant]
     Active Substance: CARBAMAZEPINE
     Indication: SEIZURE
     Dosage: EVERY 12 HOURS
     Dates: start: 201604
  7. DEPAKENE [Concomitant]
     Active Substance: VALPROIC ACID
     Indication: SEIZURE
     Dosage: UNK
     Dates: end: 201604
  8. LAMOTRIGINE. [Concomitant]
     Active Substance: LAMOTRIGINE
     Indication: SEIZURE
  9. HIDANTAL [Concomitant]
     Active Substance: PHENYTOIN SODIUM
     Indication: SEIZURE
  10. TALIGLUCERASE ALFA [Suspect]
     Active Substance: TALIGLUCERASE ALFA
     Indication: GAUCHER^S DISEASE
     Dosage: 7 AMPOULES, UNSPECIFIED FREQUENCY
     Dates: start: 201409

REACTIONS (8)
  - Asthenia [Recovering/Resolving]
  - Coma [Unknown]
  - Abasia [Not Recovered/Not Resolved]
  - Gaucher^s disease [Unknown]
  - Disease progression [Recovering/Resolving]
  - Dizziness [Recovering/Resolving]
  - Tremor [Recovering/Resolving]
  - Weight decreased [Unknown]

NARRATIVE: CASE EVENT DATE: 201604
